FAERS Safety Report 24176650 (Version 1)
Quarter: 2024Q3

REPORT INFORMATION
  Report Type: Spontaneous
  Country: ZA (occurrence: None)
  Receive Date: 20240806
  Receipt Date: 20240806
  Transmission Date: 20241017
  Serious: Yes (Hospitalization, Other)
  Sender: ASTRAZENECA
  Company Number: 2024A172599

PATIENT
  Age: 32507 Day
  Sex: Female

DRUGS (7)
  1. DAPAGLIFLOZIN PROPANEDIOL [Suspect]
     Active Substance: DAPAGLIFLOZIN PROPANEDIOL
     Indication: Type 2 diabetes mellitus
     Route: 048
  2. BISOPROLOL FUMARATE [Concomitant]
     Active Substance: BISOPROLOL FUMARATE
     Indication: Hypertension
  3. NEUROBION [Concomitant]
     Active Substance: CYANOCOBALAMIN\PYRIDOXINE\THIAMINE
  4. MENACAL 7 [Concomitant]
  5. LANOXIN [Concomitant]
     Active Substance: DIGOXIN
     Indication: Arrhythmia
  6. SPIRACTIN [Concomitant]
     Indication: Hypertension
  7. ELIQUIS [Concomitant]
     Active Substance: APIXABAN
     Indication: Coagulation factor inhibitor assay

REACTIONS (2)
  - Wrist fracture [Unknown]
  - Fall [Unknown]
